FAERS Safety Report 7857278-1 (Version None)
Quarter: 2011Q4

REPORT INFORMATION
  Report Type: 
  Country: None (occurrence: None)
  Receive Date: 20111027
  Receipt Date: 20090521
  Transmission Date: 20120403
  Serious: No
  Sender: FDA-Public Use
  Company Number: US-BIOGENIDEC-2009BI015879

PATIENT
  Age: 38 Year
  Sex: Female

DRUGS (2)
  1. TYSABRI [Suspect]
     Indication: MULTIPLE SCLEROSIS
     Route: 042
     Dates: start: 20090520
  2. BLOOD PRESSURE MEDICATION (NOS) [Concomitant]

REACTIONS (8)
  - SOMNOLENCE [None]
  - ENERGY INCREASED [None]
  - NAUSEA [None]
  - MIGRAINE [None]
  - FATIGUE [None]
  - BLOOD PRESSURE SYSTOLIC INCREASED [None]
  - BLOOD PRESSURE DIASTOLIC DECREASED [None]
  - HEADACHE [None]
